FAERS Safety Report 7357066-9 (Version None)
Quarter: 2011Q1

REPORT INFORMATION
  Report Type: 
  Country: None (occurrence: None)
  Receive Date: 20110317
  Receipt Date: 20110215
  Transmission Date: 20110831
  Serious: Yes (Hospitalization)
  Sender: FDA-Public Use
  Company Number: US-BAYER-201027079NA

PATIENT
  Sex: Female

DRUGS (3)
  1. YAZ [Suspect]
     Indication: PRODUCT USED FOR UNKNOWN INDICATION
     Route: 048
     Dates: start: 20071201
  2. MIRENA [Concomitant]
     Dosage: UNK
     Dates: start: 20090701
  3. ZOSYN [Concomitant]
     Route: 042

REACTIONS (5)
  - CHOLELITHIASIS [None]
  - NAUSEA [None]
  - BILIARY COLIC [None]
  - CHOLESTEROSIS [None]
  - CHOLECYSTITIS ACUTE [None]
